FAERS Safety Report 5149304-8 (Version None)
Quarter: 2006Q4

REPORT INFORMATION
  Report Type: 
  Country: None (occurrence: None)
  Receive Date: 20061113
  Receipt Date: 20051102
  Transmission Date: 20070319
  Serious: No
  Sender: FDA-Public Use
  Company Number: 423554

PATIENT
  Age: 43 Year
  Sex: Female
  Weight: 62.3 kg

DRUGS (6)
  1. COREG [Suspect]
     Dosage: 3.125MG TWICE PER DAY
     Route: 048
     Dates: start: 20050823, end: 20051001
  2. HYZAAR [Suspect]
     Indication: HYPERTENSION
     Route: 048
  3. HYDROCHLOROTHIAZIDE [Suspect]
     Route: 048
  4. ZOCOR [Concomitant]
  5. LANOXIN [Concomitant]
  6. ASPIRIN [Concomitant]

REACTIONS (4)
  - ASTHENIA [None]
  - DIZZINESS [None]
  - FATIGUE [None]
  - HYPOTENSION [None]
